FAERS Safety Report 6301179-7 (Version None)
Quarter: 2009Q3

REPORT INFORMATION
  Report Type: 
  Country: None (occurrence: None)
  Receive Date: 20090807
  Receipt Date: 20090716
  Transmission Date: 20100115
  Serious: Yes (Other)
  Sender: FDA-Public Use
  Company Number: PHHY2009HU29541

PATIENT

DRUGS (2)
  1. IMATINIB MESYLATE [Suspect]
     Indication: ACUTE LYMPHOCYTIC LEUKAEMIA
     Dosage: 400 MG, UNK
  2. PREDNISOLONE [Concomitant]

REACTIONS (4)
  - ECTHYMA [None]
  - OEDEMA [None]
  - PSEUDOMONAS INFECTION [None]
  - VASCULITIS [None]
